FAERS Safety Report 7762705-4 (Version None)
Quarter: 2011Q3

REPORT INFORMATION
  Report Type: 
  Country: None (occurrence: None)
  Receive Date: 20110920
  Receipt Date: 20110915
  Transmission Date: 20111222
  Serious: Yes (Other)
  Sender: FDA-Public Use
  Company Number: US-PFIZER INC-2011219896

PATIENT
  Sex: Female

DRUGS (1)
  1. CHANTIX [Suspect]
     Dosage: UNK
     Dates: start: 20080801

REACTIONS (6)
  - NIGHTMARE [None]
  - SKIN INJURY [None]
  - MOOD SWINGS [None]
  - LOSS OF CONSCIOUSNESS [None]
  - ULNAR NERVE INJURY [None]
  - ROAD TRAFFIC ACCIDENT [None]
